FAERS Safety Report 5491547-8 (Version None)
Quarter: 2007Q4

REPORT INFORMATION
  Report Type: 
  Country: None (occurrence: None)
  Receive Date: 20071022
  Receipt Date: 20071012
  Transmission Date: 20080405
  Serious: Yes (Hospitalization, Other)
  Sender: FDA-Public Use
  Company Number: PHEH2007US13544

PATIENT
  Age: 3 Year
  Sex: Female

DRUGS (5)
  1. CYCLOSPORINE [Suspect]
     Indication: BONE MARROW TRANSPLANT
     Dosage: UNK, UNK
  2. PREDNISOLONE [Concomitant]
     Indication: IMMUNOSUPPRESSION
  3. ENALAPRIL MALEATE [Suspect]
     Indication: HYPERTENSION
     Dates: start: 20040501, end: 20060601
  4. ENALAPRIL MALEATE [Suspect]
     Dates: start: 20070907
  5. AMLODIPINE [Suspect]
     Dosage: UNK, UNK
     Dates: start: 20040401, end: 20071002

REACTIONS (19)
  - AURICULAR SWELLING [None]
  - BACTERIAL SEPSIS [None]
  - BLOOD IMMUNOGLOBULIN A INCREASED [None]
  - BONE MARROW DISORDER [None]
  - DERMATITIS [None]
  - DRUG ERUPTION [None]
  - DRUG HYPERSENSITIVITY [None]
  - HELICOBACTER INFECTION [None]
  - HYPERTENSION [None]
  - LIP SWELLING [None]
  - NEUTROPENIA [None]
  - RASH GENERALISED [None]
  - RESPIRATORY SYNCYTIAL VIRUS INFECTION [None]
  - SKIN EXFOLIATION [None]
  - SKIN FISSURES [None]
  - SKIN HAEMORRHAGE [None]
  - STAPHYLOCOCCAL SEPSIS [None]
  - SWELLING FACE [None]
  - URTICARIA [None]
